FAERS Safety Report 4392539-2 (Version None)
Quarter: 2004Q3

REPORT INFORMATION
  Report Type: 
  Country: None (occurrence: None)
  Receive Date: 20040702
  Receipt Date: 20040227
  Transmission Date: 20050211
  Serious: Yes (Other)
  Sender: FDA-Public Use
  Company Number: 2004UW03593

PATIENT
  Age: 81 Year
  Sex: Male
  Weight: 99.7913 kg

DRUGS (4)
  1. CRESTOR [Suspect]
     Indication: BLOOD CHOLESTEROL INCREASED
     Dates: start: 20040101
  2. KLOR-CON [Concomitant]
  3. HYDROCHLOROTHIAZIDE [Concomitant]
  4. TAZIAXT [Concomitant]

REACTIONS (1)
  - DYSURIA [None]
